FAERS Safety Report 9473543 (Version 2)
Quarter: 2014Q3

REPORT INFORMATION
  Report Type: Spontaneous
  Country: US (occurrence: US)
  Receive Date: 20130823
  Receipt Date: 20140827
  Transmission Date: 20150326
  Serious: No
  Sender: FDA-Public Use
  Company Number: US-GALDERMA-US13001921

PATIENT
  Age: 73 Year
  Sex: Female
  Weight: 50 kg

DRUGS (21)
  1. PREMPRO [Concomitant]
     Active Substance: ESTROGENS, CONJUGATED\MEDROXYPROGESTERONE ACETATE
  2. DOXYCYCLINE. [Concomitant]
     Active Substance: DOXYCYCLINE
     Indication: OCULAR ROSACEA
  3. ASPIRIN. [Concomitant]
     Active Substance: ASPIRIN
  4. LUCENTIS [Concomitant]
     Active Substance: RANIBIZUMAB
     Indication: MACULAR DEGENERATION
  5. DOXYCYCLINE. [Concomitant]
     Active Substance: DOXYCYCLINE
  6. AZASITE [Concomitant]
     Active Substance: AZITHROMYCIN MONOHYDRATE
     Indication: OCULAR ROSACEA
     Dosage: 1%
  7. PRESERVISION [Concomitant]
     Indication: MACULAR DEGENERATION
  8. TUMS [Concomitant]
     Active Substance: CALCIUM CARBONATE
     Indication: MINERAL SUPPLEMENTATION
  9. ADVIL [Concomitant]
     Active Substance: IBUPROFEN
  10. EFFEXOR [Concomitant]
     Active Substance: VENLAFAXINE HYDROCHLORIDE
  11. LIPITOR [Concomitant]
     Active Substance: ATORVASTATIN CALCIUM
  12. CORGARD [Concomitant]
     Active Substance: NADOLOL
     Indication: MITRAL VALVE PROLAPSE
  13. LUTEIN [Concomitant]
     Active Substance: LUTEIN
     Indication: MACULAR DEGENERATION
  14. ALBOLENE CREAM [Concomitant]
     Indication: THERAPEUTIC SKIN CARE TOPICAL
     Route: 061
  15. FIORICET [Concomitant]
     Active Substance: ACETAMINOPHEN\BUTALBITAL\CAFFEINE
  16. ADVAIR HFA [Concomitant]
     Active Substance: FLUTICASONE PROPIONATE\SALMETEROL XINAFOATE
     Indication: ASTHMA
     Dosage: 100/50
  17. METROGEL [Suspect]
     Active Substance: METRONIDAZOLE
     Indication: ROSACEA
     Route: 061
     Dates: start: 20130614, end: 20130614
  18. CLONAZEPAM. [Concomitant]
     Active Substance: CLONAZEPAM
  19. MULTIVITAMIN [Concomitant]
     Active Substance: VITAMINS
  20. MOBIC [Concomitant]
     Active Substance: MELOXICAM
  21. SUPHEDRINE [Concomitant]
     Active Substance: PSEUDOEPHEDRINE HYDROCHLORIDE

REACTIONS (4)
  - Eye irritation [Recovered/Resolved]
  - Erythema [Recovered/Resolved]
  - Eye inflammation [Recovered/Resolved]
  - Skin burning sensation [Recovered/Resolved]

NARRATIVE: CASE EVENT DATE: 20130614
